FAERS Safety Report 8777535 (Version 1)
Quarter: 2012Q4

REPORT INFORMATION
  Report Type: 
  Country: US (occurrence: US)
  Receive Date: 20120912
  Receipt Date: 20120912
  Transmission Date: 20130627
  Serious: No
  Sender: FDA-Public Use
  Company Number: US-ASTRAZENECA-2012SE70102

PATIENT
  Age: 76 Year
  Sex: Male

DRUGS (1)
  1. SYMBICORT PMDI [Suspect]
     Route: 055

REACTIONS (3)
  - Increased upper airway secretion [Unknown]
  - Dysphonia [Unknown]
  - Aphonia [Unknown]
